FAERS Safety Report 18122719 (Version 1)
Quarter: 2020Q3

REPORT INFORMATION
  Report Type: Spontaneous
  Country: US (occurrence: US)
  Receive Date: 20200807
  Receipt Date: 20200807
  Transmission Date: 20201103
  Serious: No
  Sender: FDA-Public Use
  Company Number: US-BAUSCH-BL-2020-021191

PATIENT
  Age: 63 Year
  Sex: Female

DRUGS (3)
  1. LUMIFY [Suspect]
     Active Substance: BRIMONIDINE TARTRATE
     Indication: DRY EYE
  2. LUMIFY [Suspect]
     Active Substance: BRIMONIDINE TARTRATE
     Indication: OCULAR HYPERAEMIA
     Dosage: 1 DROP IN EACH EYE AT 9AM AND THEN AGAIN IF NEEDED AT 3PM
     Route: 047
     Dates: start: 202001, end: 2020
  3. LUMIFY [Suspect]
     Active Substance: BRIMONIDINE TARTRATE
     Indication: ASTHENOPIA
     Dosage: 1 DROP IN EACH EYE AT 9AM AND THEN AGAIN IF NEEDED AT 3PM, NEW BOTTLE
     Route: 047
     Dates: start: 2020

REACTIONS (4)
  - Eye irritation [Unknown]
  - Therapeutic product effect incomplete [Unknown]
  - Product quality issue [Unknown]
  - Foreign body sensation in eyes [Unknown]

NARRATIVE: CASE EVENT DATE: 2020
